FAERS Safety Report 5320067-6 (Version None)
Quarter: 2007Q1

REPORT INFORMATION
  Report Type: 
  Country: None (occurrence: None)
  Receive Date: 20070216
  Receipt Date: 20060313
  Transmission Date: 20070707
  Serious: Yes (Death)
  Sender: FDA-Public Use
  Company Number: MC200600191

PATIENT
  Sex: Male

DRUGS (3)
  1. ANGIOMAX [Suspect]
     Dosage: SEE IMAGE
     Route: 040
     Dates: start: 20060303, end: 20060303
  2. ANGIOMAX [Suspect]
     Dosage: SEE IMAGE
     Route: 040
     Dates: start: 20060303
  3. INTEGRILIN [Concomitant]

REACTIONS (1)
  - HAEMORRHAGE INTRACRANIAL [None]
